FAERS Safety Report 17246072 (Version 1)
Quarter: 2020Q1

REPORT INFORMATION
  Report Type: Spontaneous
  Country: US (occurrence: US)
  Receive Date: 20200108
  Receipt Date: 20200108
  Transmission Date: 20200409
  Serious: No
  Sender: FDA-Public Use
  Company Number: US-BAYER-2020-003412

PATIENT
  Age: 57 Year
  Sex: Female

DRUGS (1)
  1. MIRALAX [Suspect]
     Active Substance: POLYETHYLENE GLYCOL 3350
     Indication: GASTROINTESTINAL DISORDER
     Dosage: 34 G, QD
     Route: 048
     Dates: start: 201808

REACTIONS (3)
  - Extra dose administered [Unknown]
  - Product use issue [Unknown]
  - Product packaging quantity issue [None]

NARRATIVE: CASE EVENT DATE: 201808
